FAERS Safety Report 17830884 (Version 2)
Quarter: 2020Q2

REPORT INFORMATION
  Report Type: Spontaneous
  Country: NL (occurrence: NL)
  Receive Date: 20200527
  Receipt Date: 20200601
  Transmission Date: 20200714
  Serious: Yes (Other)
  Sender: FDA-Public Use
  Company Number: NL-AMERICAN REGENT INC-2020001120

PATIENT
  Sex: Female
  Weight: 96 kg

DRUGS (1)
  1. FERINJECT [Suspect]
     Active Substance: FERRIC CARBOXYMALTOSE
     Indication: IRON DEFICIENCY ANAEMIA
     Dosage: 1 DOSAGE FORM
     Route: 042
     Dates: start: 20200131

REACTIONS (3)
  - Abortion spontaneous [Unknown]
  - Maternal exposure during pregnancy [Unknown]
  - Foetal growth restriction [Unknown]

NARRATIVE: CASE EVENT DATE: 20200131
